FAERS Safety Report 20006194 (Version 1)
Quarter: 2021Q4

REPORT INFORMATION
  Report Type: Spontaneous
  Country: TR (occurrence: TR)
  Receive Date: 20211028
  Receipt Date: 20211028
  Transmission Date: 20220303
  Serious: Yes (Other)
  Sender: FDA-Public Use
  Company Number: TR-SUN PHARMACEUTICAL INDUSTRIES LTD-2021R1-289986

PATIENT
  Age: 18 Year
  Sex: Female

DRUGS (2)
  1. BUPROPION [Suspect]
     Active Substance: BUPROPION
     Indication: Product used for unknown indication
     Dosage: 4200MG
     Route: 065
  2. BUPROPION [Suspect]
     Active Substance: BUPROPION
     Dosage: UNK/ 28 TABLET
     Route: 065

REACTIONS (3)
  - Toxicity to various agents [Unknown]
  - Epilepsy [Unknown]
  - Dystonia [Recovered/Resolved]
